FAERS Safety Report 16147866 (Version 6)
Quarter: 2022Q3

REPORT INFORMATION
  Report Type: Report from Study
  Country: US (occurrence: None)
  Receive Date: 20190402
  Receipt Date: 20220729
  Transmission Date: 20221026
  Serious: Yes (Hospitalization)
  Sender: FDA-Public Use
  Company Number: US-ROCHE-2282120

PATIENT
  Age: 49 Year
  Sex: Female
  Weight: 54.2 kg

DRUGS (29)
  1. ATEZOLIZUMAB [Suspect]
     Active Substance: ATEZOLIZUMAB
     Indication: Ovarian cancer
     Dosage: DATE OF MOST RECENT DOSE OF BLINDED ATEZOLIZUMAB PRIOR TO SAE ONSET :06/MAR/2019
     Route: 042
     Dates: start: 20180509
  2. BEVACIZUMAB [Suspect]
     Active Substance: BEVACIZUMAB
     Indication: Ovarian cancer
     Dosage: DATE OF MOST RECENT DOSE OF BEVACIZUMAB 837 MG PRIOR TO SAE ONSET :06/MAR/2019
     Route: 042
     Dates: start: 20180530
  3. PACLITAXEL [Suspect]
     Active Substance: PACLITAXEL
     Indication: Ovarian cancer
     Dosage: DATE OF MOST RECENT DOSE OF PACLITAXEL 270 MG PRIOR TO SAE ONSET: 29/AUG/2018
     Route: 042
     Dates: start: 20180509
  4. CARBOPLATIN [Suspect]
     Active Substance: CARBOPLATIN
     Indication: Ovarian cancer
     Dosage: FOR A TOTAL OF 6 CYCLES?AT DOSES TO ACHIEVE AREA UNDER THE CONCENTRATION-TIME CURVE (AUC) OF 6 MG/ML
     Route: 042
     Dates: start: 20180509
  5. VITAMIN D3 [Concomitant]
     Active Substance: CHOLECALCIFEROL
     Dates: start: 20180320, end: 20210331
  6. MAGNESIUM MALATE [Concomitant]
     Active Substance: MAGNESIUM MALATE
     Dates: start: 20180320, end: 20190906
  7. VITAMIN C [Concomitant]
     Active Substance: ASCORBIC ACID
     Dates: start: 20180504, end: 20191206
  8. D-MANNOSE [Concomitant]
     Dates: start: 20180504, end: 20200406
  9. PRINIVIL [Concomitant]
     Active Substance: LISINOPRIL
     Indication: Hypertension
     Dates: start: 20180530, end: 20190829
  10. CANNABIDIOL\HERBALS [Concomitant]
     Active Substance: CANNABIDIOL\HERBALS
     Dates: start: 20180703, end: 20210331
  11. SYNTHROID [Concomitant]
     Active Substance: LEVOTHYROXINE SODIUM
     Indication: Hypothyroidism
     Dates: start: 20180822, end: 20190206
  12. SYNTHROID [Concomitant]
     Active Substance: LEVOTHYROXINE SODIUM
     Dates: start: 20190207
  13. TURKEY TAIL MUSHROOM [Concomitant]
     Dates: start: 20180814
  14. ELIQUIS [Concomitant]
     Active Substance: APIXABAN
     Dates: start: 20190206, end: 20190829
  15. DILAUDID [Concomitant]
     Active Substance: HYDROMORPHONE HYDROCHLORIDE
     Indication: Abdominal pain
     Dosage: 6 MG/30 ML IN D5W PCA
     Dates: start: 20190308, end: 20190312
  16. ZOFRAN [Concomitant]
     Active Substance: ONDANSETRON HYDROCHLORIDE
     Indication: Nausea
     Dosage: 4 TO 8 MG, 2 MG/ML
     Dates: start: 20190308, end: 20190313
  17. ZOFRAN [Concomitant]
     Active Substance: ONDANSETRON HYDROCHLORIDE
     Dosage: 2 MG/ML
     Dates: start: 20190328, end: 20190328
  18. TYLENOL [Concomitant]
     Active Substance: ACETAMINOPHEN
     Indication: Abdominal pain
     Dates: start: 20190308, end: 20190331
  19. TYLENOL [Concomitant]
     Active Substance: ACETAMINOPHEN
     Indication: Sciatica
  20. TORADOL [Concomitant]
     Active Substance: KETOROLAC TROMETHAMINE
     Indication: Abdominal pain
     Dosage: 30 MG/ML
     Dates: start: 20190308, end: 20190309
  21. AMOXICILLIN\CLAVULANATE POTASSIUM [Concomitant]
     Active Substance: AMOXICILLIN\CLAVULANATE POTASSIUM
     Indication: Pelvic abscess
     Dosage: 875-125 MG PER TABLET
     Dates: start: 20190312, end: 20190326
  22. AMOXICILLIN\CLAVULANATE POTASSIUM [Concomitant]
     Active Substance: AMOXICILLIN\CLAVULANATE POTASSIUM
     Dosage: 875-125 MG PER TABLET
     Dates: start: 20190331, end: 20190331
  23. ROXICODONE [Concomitant]
     Active Substance: OXYCODONE HYDROCHLORIDE
     Indication: Sciatica
     Dosage: 5-10 MG
     Dates: start: 20190326, end: 20190331
  24. COLACE [Concomitant]
     Active Substance: DOCUSATE SODIUM
     Indication: Constipation
     Dates: start: 20190330, end: 20190331
  25. FAMOTIDINE [Concomitant]
     Active Substance: FAMOTIDINE
     Indication: Prophylaxis
     Dates: start: 20190327, end: 20190331
  26. SUBLIMAZE [Concomitant]
     Active Substance: FENTANYL CITRATE
     Dosage: 25-100 MCG AND 50 MCG/ML
     Dates: start: 20190328, end: 20190328
  27. VERSED [Concomitant]
     Active Substance: MIDAZOLAM HYDROCHLORIDE
     Dosage: 1 MG/ML, 0.5-2 MG
     Dates: start: 20190328, end: 20190328
  28. FLAGYL [Concomitant]
     Active Substance: METRONIDAZOLE\METRONIDAZOLE HYDROCHLORIDE
     Indication: Pelvic abscess
     Dates: start: 20190331, end: 20190410
  29. BACTRIM [Concomitant]
     Active Substance: SULFAMETHOXAZOLE\TRIMETHOPRIM
     Indication: Pelvic abscess
     Dosage: 160-800 MG PER TABLET
     Dates: start: 20190331, end: 20190410

REACTIONS (2)
  - Procedural intestinal perforation [Recovered/Resolved]
  - Pelvic abscess [Recovered/Resolved]

NARRATIVE: CASE EVENT DATE: 20190307
